FAERS Safety Report 7056937-0 (Version None)
Quarter: 2010Q4

REPORT INFORMATION
  Report Type: 
  Country: None (occurrence: None)
  Receive Date: 20101022
  Receipt Date: 20101012
  Transmission Date: 20110411
  Serious: Yes (Other)
  Sender: FDA-Public Use
  Company Number: US-JNJFOC-20101003655

PATIENT

DRUGS (1)
  1. REMICADE [Suspect]
     Indication: RHEUMATOID ARTHRITIS
     Dosage: ON INFLIXIMAB FOR SEVERAL YEARS
     Route: 042

REACTIONS (1)
  - CHRONIC LYMPHOCYTIC LEUKAEMIA [None]
